FAERS Safety Report 7155202-0 (Version None)
Quarter: 2010Q4

REPORT INFORMATION
  Report Type: 
  Country: None (occurrence: None)
  Receive Date: 20101214
  Receipt Date: 20091204
  Transmission Date: 20110411
  Serious: No
  Sender: FDA-Public Use
  Company Number: US-AMGEN-KDL366609

PATIENT

DRUGS (2)
  1. ENBREL [Suspect]
     Indication: RHEUMATOID ARTHRITIS
     Dosage: UNK UNK, UNK
     Dates: start: 20050208
  2. METHOTREXATE [Concomitant]

REACTIONS (5)
  - COUGH [None]
  - ERYTHEMA [None]
  - LIMB INJURY [None]
  - LOCAL SWELLING [None]
  - WHEEZING [None]
